FAERS Safety Report 4470418-X (Version None)
Quarter: 2004Q3

REPORT INFORMATION
  Report Type: 
  Country: None (occurrence: None)
  Receive Date: 20040909
  Receipt Date: 20040629
  Transmission Date: 20050211
  Serious: No
  Sender: FDA-Public Use
  Company Number: US-JNJFOC-20040402569

PATIENT
  Age: 83 Year
  Sex: Female
  Weight: 76.2043 kg

DRUGS (15)
  1. NATRECOR [Suspect]
     Indication: CARDIAC FAILURE CONGESTIVE
     Dosage: 2 UG/KG, 1 IN 1 WEEK INTRAVENOUS
     Route: 042
     Dates: start: 20040104
  2. NATRECOR [Suspect]
     Dosage: 0.01 UG/KG/MIN, INTRAVENOUS
     Route: 042
     Dates: start: 20040104
  3. VASOTEC [Suspect]
     Indication: HYPERTENSION
     Dosage: 5 MG 2 IN 1 DAY ORAL
     Route: 048
     Dates: start: 20040101, end: 20040401
  4. DETROL [Concomitant]
  5. TRICOR [Concomitant]
  6. BETAPACE [Concomitant]
  7. K-DUR 10 [Concomitant]
  8. COUMADIN [Concomitant]
  9. NITRO-DUR [Concomitant]
  10. LASIX [Concomitant]
  11. ALDACTONE [Concomitant]
  12. ZAROXOLYN [Concomitant]
  13. LANOXIN [Concomitant]
  14. VALIUM [Concomitant]
  15. MECLIZINE [Concomitant]

REACTIONS (5)
  - ALOPECIA [None]
  - HYPERTENSION [None]
  - HYPOTRICHOSIS [None]
  - INCONTINENCE [None]
  - SKIN CANCER [None]
